FAERS Safety Report 21850502 (Version 2)
Quarter: 2023Q1

REPORT INFORMATION
  Report Type: Report from Study
  Country: LT (occurrence: LT)
  Receive Date: 20230111
  Receipt Date: 20230220
  Transmission Date: 20230417
  Serious: Yes (Other)
  Sender: FDA-Public Use
  Company Number: LT-JNJFOC-20230104956

PATIENT

DRUGS (1)
  1. TOPAMAX [Suspect]
     Active Substance: TOPIRAMATE
     Indication: Migraine
     Route: 065

REACTIONS (7)
  - Bradycardia [Unknown]
  - Somnolence [Unknown]
  - Dizziness [Unknown]
  - Hypotension [Unknown]
  - Sleep disorder [Unknown]
  - Arthralgia [Unknown]
  - Drug ineffective [Unknown]
